FAERS Safety Report 6825151-3 (Version None)
Quarter: 2010Q3

REPORT INFORMATION
  Report Type: 
  Country: None (occurrence: None)
  Receive Date: 20100708
  Receipt Date: 20070205
  Transmission Date: 20110219
  Serious: Yes (Other)
  Sender: FDA-Public Use
  Company Number: US-PFIZER INC-2007002559

PATIENT
  Sex: Female

DRUGS (5)
  1. CHANTIX [Suspect]
     Indication: TOBACCO USER
  2. BUSPAR [Concomitant]
  3. THEOPHYLLINE [Concomitant]
  4. ACTONEL [Concomitant]
  5. OXYCONTIN [Concomitant]

REACTIONS (1)
  - SUICIDAL IDEATION [None]
